FAERS Safety Report 11264614 (Version 1)
Quarter: 2015Q3

REPORT INFORMATION
  Report Type: Spontaneous
  Country: GB (occurrence: GB)
  Receive Date: 20150713
  Receipt Date: 20150713
  Transmission Date: 20151125
  Serious: Yes (Other)
  Sender: FDA-Public Use
  Company Number: GB-BAYER-2015-372343

PATIENT
  Sex: Male

DRUGS (1)
  1. NIFEDIPINE. [Suspect]
     Active Substance: NIFEDIPINE

REACTIONS (4)
  - Low birth weight baby [None]
  - Amniotic cavity infection [None]
  - Premature baby [None]
  - Foetal exposure during pregnancy [None]
